FAERS Safety Report 6761222-8 (Version None)
Quarter: 2010Q2

REPORT INFORMATION
  Report Type: 
  Country: None (occurrence: None)
  Receive Date: 20100608
  Receipt Date: 20100528
  Transmission Date: 20101027
  Serious: Yes (Hospitalization)
  Sender: FDA-Public Use
  Company Number: CH-BAXTER-2010BH014526

PATIENT
  Age: 58 Year
  Sex: Male

DRUGS (4)
  1. ENDOXAN BAXTER [Suspect]
     Indication: DRUG USE FOR UNKNOWN INDICATION
     Route: 051
     Dates: start: 20100228, end: 20100228
  2. ENDOXAN BAXTER [Suspect]
     Route: 051
     Dates: start: 20100330, end: 20100330
  3. INFLIXIMAB [Suspect]
     Indication: DRUG USE FOR UNKNOWN INDICATION
     Route: 041
     Dates: start: 20100325, end: 20100325
  4. SPIRICORT [Suspect]
     Indication: DRUG USE FOR UNKNOWN INDICATION
     Route: 048
     Dates: start: 20091001

REACTIONS (2)
  - FUNGAL INFECTION [None]
  - OTITIS EXTERNA [None]
